FAERS Safety Report 11255793 (Version 1)
Quarter: 2015Q3

REPORT INFORMATION
  Report Type: Spontaneous
  Country: GB (occurrence: GB)
  Receive Date: 20150709
  Receipt Date: 20150709
  Transmission Date: 20151125
  Serious: Yes (Other)
  Sender: FDA-Public Use
  Company Number: GB-SA-2015SA097325

PATIENT
  Age: 70 Year
  Sex: Male
  Weight: 112 kg

DRUGS (17)
  1. ATENOLOL. [Concomitant]
     Active Substance: ATENOLOL
     Dates: start: 20130114
  2. CHLORPHENAMINE [Concomitant]
     Active Substance: CHLORPHENIRAMINE MALEATE
     Dosage: ONE OR TWO TO BE TAKEN AT NIGHT
     Dates: start: 20141013
  3. TAMSULOSIN HYDROCHLORIDE. [Concomitant]
     Active Substance: TAMSULOSIN HYDROCHLORIDE
     Dates: start: 20120919
  4. AMLODIPINE [Concomitant]
     Active Substance: AMLODIPINE BESYLATE
     Dates: start: 20130930, end: 20150618
  5. CLOTRIMAZOLE. [Concomitant]
     Active Substance: CLOTRIMAZOLE
     Dosage: TO SKIN SPARINGLY
     Route: 061
     Dates: start: 20131106
  6. OMEPRAZOLE. [Concomitant]
     Active Substance: OMEPRAZOLE
     Dates: start: 20120919
  7. NAPROXEN. [Concomitant]
     Active Substance: NAPROXEN
     Indication: GOUT
     Dosage: AS REQUIRED
     Dates: start: 20121022
  8. INDAPAMIDE. [Suspect]
     Active Substance: INDAPAMIDE
     Route: 065
     Dates: start: 20150618
  9. ALLOPURINOL. [Concomitant]
     Active Substance: ALLOPURINOL
     Dates: start: 20120919, end: 20150416
  10. DERMOL [Concomitant]
     Active Substance: BENZALKONIUM CHLORIDE\CHLORHEXIDINE HYDROCHLORIDE\ISOPROPYL MYRISTATE\PARAFFIN
     Dosage: FOR WASHING
     Dates: start: 20140527
  11. KETOCONAZOLE. [Concomitant]
     Active Substance: KETOCONAZOLE
     Dates: start: 20131106
  12. NITRAZEPAM [Concomitant]
     Active Substance: NITRAZEPAM
     Dosage: AT NIGHT
     Dates: start: 19980623
  13. BECLOMETASONE [Concomitant]
     Active Substance: BECLOMETHASONE DIPROPIONATE
     Dates: start: 20130823
  14. CHLORAMPHENICOL [Concomitant]
     Active Substance: CHLORAMPHENICOL
     Dates: start: 20150618
  15. PERINDOPRIL ERBUMINE. [Concomitant]
     Active Substance: PERINDOPRIL ERBUMINE
     Dates: start: 20091214
  16. PROCHLORPERAZINE. [Concomitant]
     Active Substance: PROCHLORPERAZINE
     Dosage: AS NECESSARY
     Dates: start: 20150513, end: 20150514
  17. VITAMIN B COMPOUND STRONG [Concomitant]
     Dates: start: 20091214

REACTIONS (2)
  - Lip swelling [Recovering/Resolving]
  - Pharyngeal oedema [Unknown]

NARRATIVE: CASE EVENT DATE: 20150622
